FAERS Safety Report 25587291 (Version 1)
Quarter: 2025Q3

REPORT INFORMATION
  Report Type: Spontaneous
  Country: US (occurrence: None)
  Receive Date: 20250721
  Receipt Date: 20250721
  Transmission Date: 20251020
  Serious: Yes (Hospitalization)
  Sender: FDA-CTU
  Company Number: None

PATIENT
  Age: 64 Year
  Sex: Female

DRUGS (1)
  1. DUPIXENT [Suspect]
     Active Substance: DUPILUMAB
     Indication: Dermatitis atopic
     Route: 058
     Dates: start: 20250603, end: 20250716

REACTIONS (6)
  - Hypersensitivity [None]
  - Headache [None]
  - Oropharyngeal pain [None]
  - Musculoskeletal stiffness [None]
  - Pyrexia [None]
  - Movement disorder [None]

NARRATIVE: CASE EVENT DATE: 20250603
